FAERS Safety Report 8911954 (Version 1)
Quarter: 2012Q4

REPORT INFORMATION
  Report Type: 
  Country: US (occurrence: US)
  Receive Date: 20121116
  Receipt Date: 20121116
  Transmission Date: 20130627
  Serious: No
  Sender: FDA-Public Use
  Company Number: US-JNJFOC-20121102985

PATIENT
  Sex: Female
  Weight: 83.46 kg

DRUGS (2)
  1. FENTANYL [Suspect]
     Indication: ABDOMINAL PAIN
     Route: 062
     Dates: start: 2012, end: 2012
  2. FENTANYL [Suspect]
     Indication: ABDOMINAL PAIN
     Route: 062
     Dates: start: 2012

REACTIONS (3)
  - Product quality issue [Unknown]
  - Application site scab [Not Recovered/Not Resolved]
  - Wrong technique in drug usage process [Unknown]
